FAERS Safety Report 9821772 (Version 2)
Quarter: 2014Q1

REPORT INFORMATION
  Report Type: Spontaneous
  Country: US (occurrence: US)
  Receive Date: 20140116
  Receipt Date: 20140127
  Transmission Date: 20141002
  Serious: Yes (Hospitalization)
  Sender: FDA-Public Use
  Company Number: US-PFIZER INC-2014012796

PATIENT
  Age: 55 Year
  Sex: Female
  Weight: 89.34 kg

DRUGS (3)
  1. CELEBREX [Suspect]
     Indication: PAIN
     Dosage: 2 MG, 2X/DAY
  2. CELEBREX [Suspect]
     Indication: CHONDROPATHY
  3. METFORMIN HCL [Suspect]
     Indication: DIABETES MELLITUS
     Dosage: UNK (1000MG IN MORNING, 1000MG IN NIGHT AND 500MG DURING MID-DAY), 3X/DAY

REACTIONS (2)
  - Diabetes mellitus [Unknown]
  - Drug ineffective [Unknown]
